FAERS Safety Report 7469867-7 (Version None)
Quarter: 2011Q2

REPORT INFORMATION
  Report Type: 
  Country: None (occurrence: None)
  Receive Date: 20110510
  Receipt Date: 20110407
  Transmission Date: 20111010
  Serious: Yes (Other)
  Sender: FDA-Public Use
  Company Number: US-BAYER-201028663NA

PATIENT
  Age: 27 Year
  Sex: Female
  Weight: 54 kg

DRUGS (1)
  1. YASMIN [Suspect]
     Indication: PRODUCT USED FOR UNKNOWN INDICATION
     Route: 048
     Dates: start: 20030101

REACTIONS (7)
  - IRRITABLE BOWEL SYNDROME [None]
  - DIARRHOEA [None]
  - CHOLELITHIASIS [None]
  - NAUSEA [None]
  - GASTROINTESTINAL DISORDER [None]
  - FOOD INTOLERANCE [None]
  - ABDOMINAL PAIN [None]
